FAERS Safety Report 7716465-3 (Version None)
Quarter: 2011Q3

REPORT INFORMATION
  Report Type: 
  Country: None (occurrence: None)
  Receive Date: 20110829
  Receipt Date: 20110825
  Transmission Date: 20111222
  Serious: Yes (Death, Other)
  Sender: FDA-Public Use
  Company Number: PHHY2011PL76015

PATIENT
  Age: 12 Year
  Sex: Female

DRUGS (2)
  1. TACROLIMUS [Suspect]
     Dosage: 3 MG/DAY
  2. TACROLIMUS [Suspect]
     Indication: GRAFT VERSUS HOST DISEASE
     Dosage: 06 MG/DAY
     Route: 048

REACTIONS (4)
  - CEREBRAL DISORDER [None]
  - LEUKOENCEPHALOPATHY [None]
  - CONVULSION [None]
  - LOSS OF CONSCIOUSNESS [None]
